FAERS Safety Report 9021102 (Version 1)
Quarter: 2013Q1

REPORT INFORMATION
  Report Type: Spontaneous
  Country: US (occurrence: US)
  Receive Date: 20130119
  Receipt Date: 20130119
  Transmission Date: 20140127
  Serious: No
  Sender: FDA-Public Use
  Company Number: US-ALLERGAN-1204058US

PATIENT
  Age: 69 Year
  Sex: Female

DRUGS (9)
  1. BOTOX? [Suspect]
     Indication: MIGRAINE
     Dosage: UNK
     Route: 030
     Dates: start: 20120130, end: 20120130
  2. PRAVASTATIN [Concomitant]
     Indication: BLOOD CHOLESTEROL INCREASED
     Dosage: UNK
     Route: 048
  3. NEXIUM                             /01479302/ [Concomitant]
     Indication: GASTROOESOPHAGEAL REFLUX DISEASE
     Dosage: UNK
     Route: 048
  4. TOPAMAX [Concomitant]
     Indication: HEADACHE
     Dosage: UNK
     Route: 048
  5. PROZAC                             /00724401/ [Concomitant]
     Indication: PRODUCT USED FOR UNKNOWN INDICATION
     Dosage: UNK
     Route: 048
  6. CLONAZEPAM [Concomitant]
     Indication: INSOMNIA
     Dosage: UNK
     Route: 048
  7. FIORICET [Concomitant]
     Indication: PAIN
     Dosage: UNK
  8. AMERGE [Concomitant]
     Indication: PAIN
     Dosage: UNK
  9. CLAUCOMA DROPS [Concomitant]
     Indication: GLAUCOMA
     Dosage: UNK

REACTIONS (1)
  - Drug ineffective [Unknown]
